FAERS Safety Report 7936310-0 (Version None)
Quarter: 2011Q4

REPORT INFORMATION
  Report Type: 
  Country: None (occurrence: None)
  Receive Date: 20111123
  Receipt Date: 20111114
  Transmission Date: 20120403
  Serious: Yes (Other)
  Sender: FDA-Public Use
  Company Number: US-BAYER-201039525NA

PATIENT
  Age: 32 Year
  Sex: Female
  Weight: 83 kg

DRUGS (4)
  1. YAZ [Suspect]
     Indication: MENSTRUAL CYCLE MANAGEMENT
     Dosage: UNK
     Route: 048
     Dates: start: 20060301, end: 20060701
  2. YAZ [Suspect]
     Indication: PREMENSTRUAL SYNDROME
  3. NAPROXEN (ALEVE) [Concomitant]
     Indication: PAIN
  4. ANTIBIOTICS [Concomitant]
     Dosage: UNK
     Dates: start: 20010101, end: 20110101

REACTIONS (3)
  - CHOLECYSTITIS CHRONIC [None]
  - CHOLELITHIASIS [None]
  - PAIN [None]
